FAERS Safety Report 9761118 (Version 1)
Quarter: 2013Q4

REPORT INFORMATION
  Report Type: Spontaneous
  Country: US (occurrence: US)
  Receive Date: 20131216
  Receipt Date: 20131216
  Transmission Date: 20140711
  Serious: No
  Sender: FDA-Public Use
  Company Number: US-BIOGENIDEC-2013BI104941

PATIENT
  Age: 44 Year
  Sex: Female
  Weight: 117 kg

DRUGS (4)
  1. TECFIDERA [Suspect]
     Indication: PRODUCT USED FOR UNKNOWN INDICATION
     Route: 048
  2. TIZANIDINE [Concomitant]
     Route: 048
  3. PROVIGIL [Concomitant]
     Route: 048
  4. TRAMADOL HCL [Concomitant]
     Route: 048

REACTIONS (3)
  - Pain in extremity [Unknown]
  - Flushing [Unknown]
  - Erythema [Unknown]
